FAERS Safety Report 8345803-6 (Version None)
Quarter: 2012Q2

REPORT INFORMATION
  Report Type: 
  Country: None (occurrence: None)
  Receive Date: 20120509
  Receipt Date: 20120501
  Transmission Date: 20120825
  Serious: Yes (Other)
  Sender: FDA-Public Use
  Company Number: US-AMGEN-USASP2012027444

PATIENT
  Age: 30 Year
  Sex: Female

DRUGS (1)
  1. ENBREL [Suspect]
     Indication: PSORIATIC ARTHROPATHY
     Dosage: 50 MG, QWK
     Dates: start: 20100930

REACTIONS (10)
  - DYSARTHRIA [None]
  - DIZZINESS [None]
  - PAIN IN EXTREMITY [None]
  - SPEECH DISORDER [None]
  - BACK PAIN [None]
  - SINUSITIS [None]
  - OEDEMA PERIPHERAL [None]
  - EAR INFECTION BACTERIAL [None]
  - ARTHRALGIA [None]
  - MULTIPLE ALLERGIES [None]
